FAERS Safety Report 6665846-8 (Version None)
Quarter: 2010Q1

REPORT INFORMATION
  Report Type: 
  Country: None (occurrence: None)
  Receive Date: 20100329
  Receipt Date: 20090807
  Transmission Date: 20100710
  Serious: No
  Sender: FDA-Public Use
  Company Number: 2009-00480

PATIENT
  Sex: Female

DRUGS (1)
  1. ALL ZICAM PRODUCTS [Suspect]
     Dosage: ONE DOSE-ONE DOSE
     Dates: start: 20090805, end: 20090805

REACTIONS (2)
  - AGEUSIA [None]
  - ANOSMIA [None]
